FAERS Safety Report 16823895 (Version 2)
Quarter: 2019Q3

REPORT INFORMATION
  Report Type: Spontaneous
  Country: BR (occurrence: BR)
  Receive Date: 20190918
  Receipt Date: 20190923
  Transmission Date: 20191005
  Serious: No
  Sender: FDA-Public Use
  Company Number: BR-PFIZER INC-2018423223

PATIENT
  Sex: Female
  Weight: 60 kg

DRUGS (4)
  1. LORAX [LORAZEPAM] [Suspect]
     Active Substance: LORAZEPAM
     Indication: INSOMNIA
     Dosage: 4 MG, DAILY (EVERY NIGHT)
     Dates: start: 2002
  2. LORAX [LORAZEPAM] [Suspect]
     Active Substance: LORAZEPAM
     Indication: ANXIETY
     Dosage: UNK (LOWER DOSAGE)
  3. LORAX [LORAZEPAM] [Suspect]
     Active Substance: LORAZEPAM
     Dosage: UNK
     Dates: start: 2003, end: 201808
  4. LORAX [LORAZEPAM] [Suspect]
     Active Substance: LORAZEPAM
     Dosage: 4 MG, DAILY (EVERY NIGHT)

REACTIONS (3)
  - Therapeutic product effect incomplete [Unknown]
  - Product use issue [Unknown]
  - Crying [Not Recovered/Not Resolved]

NARRATIVE: CASE EVENT DATE: 201808
